FAERS Safety Report 8119937-5 (Version None)
Quarter: 2012Q1

REPORT INFORMATION
  Report Type: 
  Country: None (occurrence: None)
  Receive Date: 20120206
  Receipt Date: 20120206
  Transmission Date: 20120608
  Serious: No
  Sender: FDA-Public Use
  Company Number: None

PATIENT
  Age: 78 Year
  Sex: Male
  Weight: 97.5234 kg

DRUGS (1)
  1. PATANASE [Suspect]
     Indication: UPPER RESPIRATORY TRACT INFECTION
     Dosage: 665 MCG 2X DAILY
     Dates: start: 20120120, end: 20120124

REACTIONS (1)
  - EPISTAXIS [None]
